APPROVED DRUG PRODUCT: ASPIRIN AND DIPYRIDAMOLE
Active Ingredient: ASPIRIN; DIPYRIDAMOLE
Strength: 25MG;200MG
Dosage Form/Route: CAPSULE, EXTENDED RELEASE;ORAL
Application: A210318 | Product #001 | TE Code: AB
Applicant: GLENMARK SPECIALTY SA
Approved: May 24, 2019 | RLD: No | RS: Yes | Type: RX